FAERS Safety Report 23588357 (Version 1)
Quarter: 2024Q1

REPORT INFORMATION
  Report Type: Spontaneous
  Country: NL (occurrence: NL)
  Receive Date: 20240302
  Receipt Date: 20240302
  Transmission Date: 20240410
  Serious: Yes (Other)
  Sender: FDA-Public Use
  Company Number: None

PATIENT
  Age: 35 Year
  Sex: Female
  Weight: 56 kg

DRUGS (2)
  1. BUPROPION HYDROCHLORIDE [Suspect]
     Active Substance: BUPROPION HYDROCHLORIDE
     Indication: Attention deficit hyperactivity disorder
     Dosage: 1X PER DAY.
     Dates: start: 20231010
  2. DESOGESTREL [Suspect]
     Active Substance: DESOGESTREL
     Indication: Premenstrual syndrome
     Dosage: 1X PER DAY, TABLET 0.075 MG
     Dates: start: 20200201

REACTIONS (3)
  - Abdominal discomfort [Recovered/Resolved]
  - Depressive symptom [Recovered/Resolved]
  - Suicidal ideation [Recovered/Resolved]
